FAERS Safety Report 7886532-2 (Version None)
Quarter: 2011Q4

REPORT INFORMATION
  Report Type: 
  Country: None (occurrence: None)
  Receive Date: 20111102
  Receipt Date: 20110707
  Transmission Date: 20120403
  Serious: No
  Sender: FDA-Public Use
  Company Number: US-AMGEN-USASP2011034643

PATIENT
  Age: 63 Year
  Sex: Female

DRUGS (2)
  1. ENBREL [Suspect]
     Indication: RHEUMATOID ARTHRITIS
     Dosage: 50 MG, QWK
     Dates: start: 20110427
  2. METHOTREXATE SODIUM [Concomitant]
     Dosage: 8 MG, QWK
     Dates: start: 20110401

REACTIONS (5)
  - EXCORIATION [None]
  - URINARY TRACT INFECTION [None]
  - FALL [None]
  - LIMB INJURY [None]
  - INJECTION SITE PAIN [None]
